FAERS Safety Report 4929681-0 (Version None)
Quarter: 2006Q1

REPORT INFORMATION
  Report Type: 
  Country: None (occurrence: None)
  Receive Date: 20060224
  Receipt Date: 20060215
  Transmission Date: 20060701
  Serious: Yes (Hospitalization, Other)
  Sender: FDA-Public Use
  Company Number: 2006-00557

PATIENT
  Sex: Female

DRUGS (2)
  1. MINOCYCLINE HYDROCHLORIDE [Suspect]
     Indication: ARTHROPOD BITE
     Dosage: ORAL
     Route: 048
     Dates: start: 20030606, end: 20030627
  2. DOXYCYCLINE HYCLATE (WATSON LABORATORIES) (DOXYCYCLINE HYCLATE) [Suspect]
     Indication: ARTHROPOD BITE
     Dosage: 2 DOSES, ORAL
     Route: 048
     Dates: start: 20030627

REACTIONS (8)
  - DIABETES MELLITUS [None]
  - HYPERSENSITIVITY [None]
  - LUPUS-LIKE SYNDROME [None]
  - MALAISE [None]
  - MULTI-ORGAN FAILURE [None]
  - PHOTOSENSITIVITY REACTION [None]
  - PYREXIA [None]
  - RESPIRATORY DISORDER [None]
